FAERS Safety Report 24296054 (Version 1)
Quarter: 2024Q3

REPORT INFORMATION
  Report Type: Spontaneous
  Country: DE (occurrence: DE)
  Receive Date: 20240909
  Receipt Date: 20240909
  Transmission Date: 20241017
  Serious: Yes (Disabling, Congenital Anomaly)
  Sender: MICRO LABS
  Company Number: DE-EMBRYOTOX-202310245

PATIENT
  Sex: Female
  Weight: 2.6 kg

DRUGS (3)
  1. LEVETIRACETAM [Suspect]
     Active Substance: LEVETIRACETAM
     Indication: Epilepsy
     Dosage: 5000 [MG/D ]/ UNTIL GW 8 2000 MG/D, THEN INCREASED TO 2X2500 MG/D
     Route: 064
     Dates: start: 20230311, end: 20231207
  2. LAMOTRIGINE [Suspect]
     Active Substance: LAMOTRIGINE
     Indication: Epilepsy
     Dosage: 400 [MG/D ]/ UNTIL GW 8 50-0-100 MG/D, THEN INCREASED TO 2X200 MG/D
     Route: 064
     Dates: start: 20230311, end: 20231207
  3. FOLIC ACID [Concomitant]
     Active Substance: FOLIC ACID
     Indication: Prophylaxis of neural tube defect
     Route: 064
     Dates: start: 20230311, end: 20231207

REACTIONS (2)
  - Limb reduction defect [Unknown]
  - Foetal exposure during pregnancy [Unknown]

NARRATIVE: CASE EVENT DATE: 20231201
